FAERS Safety Report 12915799 (Version 1)
Quarter: 2016Q4

REPORT INFORMATION
  Report Type: Spontaneous
  Country: US (occurrence: US)
  Receive Date: 20161103
  Receipt Date: 20161103
  Transmission Date: 20170207
  Serious: Yes (Hospitalization)
  Sender: FDA-Public Use
  Company Number: None

PATIENT
  Age: 16 Year
  Sex: Female
  Weight: 62.5 kg

DRUGS (7)
  1. METHOTREXATE. [Suspect]
     Active Substance: METHOTREXATE
     Dates: end: 20160926
  2. VINCRISTINE SULFATE. [Suspect]
     Active Substance: VINCRISTINE SULFATE
     Dates: end: 20161003
  3. ONCASPAR [Suspect]
     Active Substance: PEGASPARGASE
     Dosage: 8370 UNIT
     Dates: end: 20160928
  4. HYDROCORTISONE. [Suspect]
     Active Substance: HYDROCORTISONE
     Dates: end: 20160926
  5. MITOXANTRONE HYDROCHLORIDE. [Suspect]
     Active Substance: MITOXANTRONE HYDROCHLORIDE
     Dates: end: 20160913
  6. CYTARABINE. [Suspect]
     Active Substance: CYTARABINE
     Dates: end: 20160926
  7. DEXAMETHASONE. [Suspect]
     Active Substance: DEXAMETHASONE
     Dates: end: 20160930

REACTIONS (9)
  - Periorbital oedema [None]
  - Nasal necrosis [None]
  - Pyrexia [None]
  - Swelling face [None]
  - Encephalitis [None]
  - Mucormycosis [None]
  - Facial pain [None]
  - Headache [None]
  - Sinusitis [None]

NARRATIVE: CASE EVENT DATE: 20161002
